FAERS Safety Report 4384666-0 (Version None)
Quarter: 2004Q2

REPORT INFORMATION
  Report Type: 
  Country: None (occurrence: None)
  Receive Date: 20040621
  Receipt Date: 20040614
  Transmission Date: 20050107
  Serious: Yes (Life-Threatening, Hospitalization)
  Sender: FDA-Public Use
  Company Number: 2004PK01015

PATIENT
  Age: 88 Year
  Sex: Female
  Weight: 58.6 kg

DRUGS (1)
  1. BELOC ZOK [Suspect]
     Indication: HYPERTENSION
     Dosage: 47.5 MG DAILY PO
     Route: 048
     Dates: start: 20031201, end: 20040309

REACTIONS (1)
  - CIRCULATORY COLLAPSE [None]
